FAERS Safety Report 4538337-8 (Version None)
Quarter: 2004Q4

REPORT INFORMATION
  Report Type: 
  Country: None (occurrence: None)
  Receive Date: 20041223
  Receipt Date: 20041223
  Transmission Date: 20050328
  Serious: Yes (Other)
  Sender: FDA-Public Use
  Company Number: None

PATIENT
  Age: 48 Year
  Sex: Female

DRUGS (2)
  1. BEXTRA [Suspect]
     Indication: INFLAMMATION
     Dosage: 1 QD
     Dates: start: 20040815, end: 20041130
  2. BEXTRA [Suspect]
     Indication: PAIN
     Dosage: 1 QD
     Dates: start: 20040815, end: 20041130

REACTIONS (1)
  - CHEST PAIN [None]
